FAERS Safety Report 6666747-1 (Version None)
Quarter: 2010Q2

REPORT INFORMATION
  Report Type: 
  Country: None (occurrence: None)
  Receive Date: 20100405
  Receipt Date: 20100322
  Transmission Date: 20101027
  Serious: Yes (Hospitalization, Other)
  Sender: FDA-Public Use
  Company Number: BR-RANBAXY-2010RR-32441

PATIENT
  Age: 78 Year
  Sex: Female

DRUGS (2)
  1. SERTRALINE HCL [Suspect]
     Indication: DEPRESSION
     Dosage: 100 MG, UNK
  2. VENLAFAXINE [Concomitant]
     Dosage: 75 MG, UNK

REACTIONS (1)
  - MOUTH ULCERATION [None]
